FAERS Safety Report 5309254-0 (Version None)
Quarter: 2007Q1

REPORT INFORMATION
  Report Type: 
  Country: None (occurrence: None)
  Receive Date: 20070201
  Receipt Date: 20061229
  Transmission Date: 20070707
  Serious: No
  Sender: FDA-Public Use
  Company Number: 2007PV027584

PATIENT
  Age: 55 Year
  Sex: Female
  Weight: 81.6475 kg

DRUGS (2)
  1. BYETTA [Suspect]
     Indication: DIABETES MELLITUS
     Dosage: SEE IMAGE
     Route: 058
     Dates: start: 20061101, end: 20061201
  2. BYETTA [Suspect]
     Indication: DIABETES MELLITUS
     Dosage: SEE IMAGE
     Route: 058
     Dates: start: 20061201

REACTIONS (11)
  - DECREASED APPETITE [None]
  - DIARRHOEA [None]
  - INJECTION SITE BRUISING [None]
  - INJECTION SITE RASH [None]
  - INSOMNIA [None]
  - MEDICATION ERROR [None]
  - MEMORY IMPAIRMENT [None]
  - MUSCLE SPASMS [None]
  - NAUSEA [None]
  - VOMITING [None]
  - WEIGHT DECREASED [None]
